FAERS Safety Report 17387856 (Version 1)
Quarter: 2020Q1

REPORT INFORMATION
  Report Type: Spontaneous
  Country: US (occurrence: US)
  Receive Date: 20200206
  Receipt Date: 20200206
  Transmission Date: 20200409
  Serious: No
  Sender: FDA-Public Use
  Company Number: US-RADIUS HEALTH INC.-2019US004308

PATIENT
  Age: 58 Year
  Sex: Female

DRUGS (2)
  1. TYMLOS [Suspect]
     Active Substance: ABALOPARATIDE
     Indication: OSTEOPOROSIS POSTMENOPAUSAL
     Dosage: 80 MCG, QD
     Route: 058
     Dates: start: 201911
  2. TYMLOS [Suspect]
     Active Substance: ABALOPARATIDE
     Dosage: 80 MCG, QD
     Route: 058
     Dates: start: 201911

REACTIONS (12)
  - Fatigue [Unknown]
  - Insomnia [Unknown]
  - Liquid product physical issue [Unknown]
  - Product quality issue [Unknown]
  - Headache [Unknown]
  - Dry mouth [Unknown]
  - Pain [Unknown]
  - Palpitations [Unknown]
  - Intentional dose omission [Unknown]
  - Paraesthesia [Unknown]
  - Dry skin [Unknown]
  - Constipation [Unknown]

NARRATIVE: CASE EVENT DATE: 20191116
